FAERS Safety Report 4579932-X (Version None)
Quarter: 2005Q1

REPORT INFORMATION
  Report Type: 
  Country: None (occurrence: None)
  Receive Date: 20050210
  Receipt Date: 20050126
  Transmission Date: 20050727
  Serious: Yes (Death)
  Sender: FDA-Public Use
  Company Number: 2004AL000716

PATIENT
  Age: 66 Year
  Sex: Male

DRUGS (7)
  1. TEMAZEPAM [Suspect]
     Dosage: PO
     Route: 048
  2. HYDRAMINE [Suspect]
     Dosage: PO
     Route: 048
  3. ACETAMINOPHEN [Suspect]
     Dosage: PO
     Route: 048
  4. ACETAMINOPHEN [Suspect]
     Dosage: PO
     Route: 048
  5. HYDRAMIN [Suspect]
     Dosage: PO
     Route: 048
  6. DOXAZOSIN MESYLATE TABLETS, 8 MG (BASE) (PUREPAC) [Suspect]
     Dosage: PO
     Route: 048
  7. AMOXICILLIN [Suspect]
     Dosage: PO
     Route: 048

REACTIONS (6)
  - CARDIO-RESPIRATORY ARREST [None]
  - COMPLETED SUICIDE [None]
  - HEART RATE ABNORMAL [None]
  - LOSS OF CONSCIOUSNESS [None]
  - MULTIPLE DRUG OVERDOSE [None]
  - RESPIRATION ABNORMAL [None]
